FAERS Safety Report 13594018 (Version 1)
Quarter: 2017Q2

REPORT INFORMATION
  Report Type: Spontaneous
  Country: CN (occurrence: CN)
  Receive Date: 20170530
  Receipt Date: 20170530
  Transmission Date: 20170830
  Serious: Yes (Other)
  Sender: FDA-Public Use
  Company Number: CN-BAYER-2017-095617

PATIENT
  Age: 39 Year
  Sex: Female

DRUGS (1)
  1. MIRENA [Suspect]
     Active Substance: LEVONORGESTREL
     Indication: ENDOMETRIAL THICKENING
     Dosage: 20 MCG/24HR, CONT
     Route: 015
     Dates: start: 201702

REACTIONS (2)
  - Immunodeficiency [None]
  - Off label use of device [None]

NARRATIVE: CASE EVENT DATE: 201705
